FAERS Safety Report 5028025-6 (Version None)
Quarter: 2006Q2

REPORT INFORMATION
  Report Type: 
  Country: None (occurrence: None)
  Receive Date: 20060609
  Receipt Date: 20060531
  Transmission Date: 20061013
  Serious: Yes (Other)
  Sender: FDA-Public Use
  Company Number: 2006070899

PATIENT
  Age: 76 Year
  Sex: Male
  Weight: 65.7716 kg

DRUGS (8)
  1. NEURONTIN [Suspect]
     Indication: BURNING SENSATION
     Dates: start: 20030101, end: 20030101
  2. NEURONTIN [Suspect]
     Indication: HYPOAESTHESIA
     Dates: start: 20030101, end: 20030101
  3. NEURONTIN [Suspect]
     Indication: PARAESTHESIA
     Dates: start: 20030101, end: 20030101
  4. LYRICA [Suspect]
     Indication: BURNING SENSATION
     Dosage: 50 MG (50 MG, 1 IN 1D)
     Dates: start: 20060525
  5. LYRICA [Suspect]
     Indication: HYPOAESTHESIA
     Dosage: 50 MG (50 MG, 1 IN 1D)
     Dates: start: 20060525
  6. LYRICA [Suspect]
     Indication: PARAESTHESIA
     Dosage: 50 MG (50 MG, 1 IN 1D)
     Dates: start: 20060525
  7. GLUCOTROL [Concomitant]
  8. ANTIHYPERTENSIVES (ANTIHYPERTENSIVES) [Concomitant]

REACTIONS (12)
  - ASTHENIA [None]
  - CHEST DISCOMFORT [None]
  - DIFFICULTY IN WALKING [None]
  - DISTURBANCE IN ATTENTION [None]
  - DRUG INEFFECTIVE [None]
  - DRY MOUTH [None]
  - DYSPHAGIA [None]
  - FATIGUE [None]
  - PALPITATIONS [None]
  - SOMNOLENCE [None]
  - THROAT TIGHTNESS [None]
  - VISION BLURRED [None]
